FAERS Safety Report 23907589 (Version 2)
Quarter: 2024Q3

REPORT INFORMATION
  Report Type: Spontaneous
  Country: AM (occurrence: AM)
  Receive Date: 20240528
  Receipt Date: 20240703
  Transmission Date: 20241017
  Serious: Yes (Other)
  Sender: STRIDES
  Company Number: AM-STRIDES ARCOLAB LIMITED-2024SP006082

PATIENT
  Age: 53 Year
  Sex: Female

DRUGS (12)
  1. PHENOBARBITAL [Suspect]
     Active Substance: PHENOBARBITAL
     Indication: Product used for unknown indication
     Dosage: UNK
     Route: 065
  2. CETIRIZINE [Suspect]
     Active Substance: CETIRIZINE HYDROCHLORIDE
     Indication: Cutaneous vasculitis
     Dosage: UNK
     Route: 065
  3. IBUPROFEN [Suspect]
     Active Substance: IBUPROFEN
     Indication: COVID-19
     Dosage: UNK
     Route: 065
  4. BROMISOVAL\PHENOBARBITAL SODIUM [Concomitant]
     Active Substance: BROMISOVAL\PHENOBARBITAL SODIUM
     Indication: Menopausal symptoms
     Dosage: 40 DROP
     Route: 065
  5. CITRAMON [Concomitant]
     Active Substance: ACETAMINOPHEN\ASPIRIN\CAFFEINE
     Indication: Menopausal symptoms
     Dosage: UNK
     Route: 065
  6. BROMISOVAL\HOPS\PHENOBARBITAL [Concomitant]
     Active Substance: BROMISOVAL\HOPS\PHENOBARBITAL
     Indication: Menopausal symptoms
     Dosage: 30 DROP
     Route: 065
  7. LEVOTHYROXINE [Concomitant]
     Active Substance: LEVOTHYROXINE\LEVOTHYROXINE SODIUM
     Indication: Autoimmune thyroiditis
     Dosage: UNK
     Route: 065
  8. THIOPENTAL SODIUM [Concomitant]
     Active Substance: THIOPENTAL SODIUM
     Indication: Anaesthesia
     Dosage: UNK
     Route: 065
  9. ASPIRIN [Concomitant]
     Active Substance: ASPIRIN
     Indication: COVID-19
     Dosage: UNK
     Route: 065
  10. ACETAMINOPHEN [Concomitant]
     Active Substance: ACETAMINOPHEN
     Indication: COVID-19
     Dosage: UNK
     Route: 065
  11. DEXAMETHASONE [Concomitant]
     Active Substance: DEXAMETHASONE
     Indication: Cutaneous vasculitis
     Dosage: UNK
     Route: 065
  12. MOMETASONE FUROATE [Concomitant]
     Active Substance: MOMETASONE FUROATE
     Indication: Cutaneous vasculitis
     Dosage: UNK
     Route: 065

REACTIONS (2)
  - Cutaneous vasculitis [Unknown]
  - Off label use [Unknown]
